FAERS Safety Report 11334951 (Version 1)
Quarter: 2015Q3

REPORT INFORMATION
  Report Type: Spontaneous
  Country: US (occurrence: None)
  Receive Date: 20150731
  Receipt Date: 20150731
  Transmission Date: 20151125
  Serious: Yes (Other)
  Sender: FDA-Public Use
  Company Number: None

PATIENT
  Age: 73 Year
  Sex: Female
  Weight: 85.73 kg

DRUGS (10)
  1. CIPROFLOXACIN. [Suspect]
     Active Substance: CIPROFLOXACIN
     Indication: SINUSITIS
     Route: 048
     Dates: start: 20150519, end: 20150602
  2. LISINOPRIL. [Concomitant]
     Active Substance: LISINOPRIL
  3. MAGNESIUM [Concomitant]
     Active Substance: MAGNESIUM
  4. POTASSIUM [Concomitant]
     Active Substance: POTASSIUM
  5. CO ENZYME Q 10 [Concomitant]
  6. VITAMIN E [Concomitant]
     Active Substance: .ALPHA.-TOCOPHEROL
  7. NICIAN [Concomitant]
  8. LEVOTHYROXINE. [Concomitant]
     Active Substance: LEVOTHYROXINE
  9. PROBIOTIC [Concomitant]
     Active Substance: PROBIOTICS NOS
  10. MONTELUKAST [Concomitant]
     Active Substance: MONTELUKAST SODIUM

REACTIONS (11)
  - Decreased interest [None]
  - Pain in extremity [None]
  - Sleep disorder [None]
  - Anorectal discomfort [None]
  - Fungal infection [None]
  - Anal pruritus [None]
  - Nausea [None]
  - Activities of daily living impaired [None]
  - Feeling abnormal [None]
  - Arthralgia [None]
  - Musculoskeletal pain [None]

NARRATIVE: CASE EVENT DATE: 20150519
